FAERS Safety Report 8540769-8 (Version None)
Quarter: 2012Q3

REPORT INFORMATION
  Report Type: 
  Country: None (occurrence: None)
  Receive Date: 20120726
  Receipt Date: 20120720
  Transmission Date: 20120928
  Serious: Yes (Other)
  Sender: FDA-Public Use
  Company Number: PHHY2012FR058615

PATIENT
  Sex: Female

DRUGS (3)
  1. ZOMETA [Suspect]
     Indication: BREAST CANCER
     Route: 042
  2. TAMOXIFENE G GAM [Suspect]
  3. LEVOTHYROXINE SODIUM [Suspect]

REACTIONS (11)
  - JOINT SWELLING [None]
  - PYREXIA [None]
  - ERYTHEMA [None]
  - FIBROMYALGIA [None]
  - OVERLAP SYNDROME [None]
  - SJOGREN'S SYNDROME [None]
  - MUSCULOSKELETAL STIFFNESS [None]
  - ARTHRALGIA [None]
  - SPINAL PAIN [None]
  - INFLUENZA [None]
  - MUSCULOSKELETAL PAIN [None]
